FAERS Safety Report 21519530 (Version 1)
Quarter: 2022Q4

REPORT INFORMATION
  Report Type: Spontaneous
  Country: US (occurrence: None)
  Receive Date: 20221027
  Receipt Date: 20221027
  Transmission Date: 20230112
  Serious: Yes (Other)
  Sender: FDA-Public Use
  Company Number: None

PATIENT
  Age: 56 Year
  Weight: 90.72 kg

DRUGS (1)
  1. ESTRADIOL VALERATE [Suspect]
     Active Substance: ESTRADIOL VALERATE
     Indication: Gender dysphoria
     Dates: start: 20210201, end: 20210201

REACTIONS (4)
  - Injection site discolouration [None]
  - Urticaria [None]
  - Pruritus [None]
  - Rash [None]

NARRATIVE: CASE EVENT DATE: 20210201
